FAERS Safety Report 6577123-4 (Version None)
Quarter: 2010Q1

REPORT INFORMATION
  Report Type: 
  Country: None (occurrence: None)
  Receive Date: 20100210
  Receipt Date: 20100128
  Transmission Date: 20100710
  Serious: Yes (Hospitalization, Other)
  Sender: FDA-Public Use
  Company Number: US-ELI_LILLY_AND_COMPANY-US201002000912

PATIENT
  Sex: Female

DRUGS (15)
  1. FORTEO [Suspect]
     Dosage: 20 UG, DAILY (1/D)
     Dates: start: 20090411
  2. LEVOTHYROXINE SODIUM [Concomitant]
  3. RANITIDINE HCL [Concomitant]
  4. TRIAMTERENE [Concomitant]
  5. LORATADINE [Concomitant]
  6. FLOVENT [Concomitant]
  7. ALPRAZOLAM [Concomitant]
  8. CALCIUM 600 + D [Concomitant]
     Dosage: UNK, 2/D
  9. CENTRUM [Concomitant]
  10. ASPIRIN [Concomitant]
  11. METRONIDAZOLE [Concomitant]
     Indication: ROSACEA
  12. ACETAMINOPHEN AND HYDROCODONE BITARTRATE [Concomitant]
  13. METOPROLOL TARTRATE [Concomitant]
     Indication: BLOOD PRESSURE
  14. DIGOXIN [Concomitant]
  15. WARFARIN SODIUM [Concomitant]

REACTIONS (3)
  - ARRHYTHMIA [None]
  - DYSPNOEA [None]
  - LUNG DISORDER [None]
